FAERS Safety Report 21076234 (Version 1)
Quarter: 2022Q3

REPORT INFORMATION
  Report Type: Spontaneous
  Country: US (occurrence: None)
  Receive Date: 20220713
  Receipt Date: 20220713
  Transmission Date: 20221027
  Serious: Yes (Hospitalization)
  Sender: FDA-Public Use
  Company Number: None

PATIENT
  Sex: Female

DRUGS (1)
  1. NUTROPIN AQ [Suspect]
     Active Substance: SOMATROPIN
     Indication: Chronic kidney disease
     Dosage: OTHER QUANTITY : 5MG/2ML;?FREQUENCY : DAILY;?
     Route: 058
     Dates: start: 20210507

REACTIONS (2)
  - Renal transplant [None]
  - Therapy interrupted [None]
